FAERS Safety Report 6760464-5 (Version None)
Quarter: 2010Q2

REPORT INFORMATION
  Report Type: 
  Country: None (occurrence: None)
  Receive Date: 20100608
  Receipt Date: 20100526
  Transmission Date: 20101027
  Serious: Yes (Other)
  Sender: FDA-Public Use
  Company Number: FR-BRACCO-000397

PATIENT
  Sex: Female

DRUGS (2)
  1. MULTIHANCE [Suspect]
     Indication: HAEMANGIOMA CONGENITAL
     Route: 042
     Dates: start: 20100412, end: 20100412
  2. MULTIHANCE [Suspect]
     Indication: NUCLEAR MAGNETIC RESONANCE IMAGING
     Route: 042
     Dates: start: 20100412, end: 20100412

REACTIONS (1)
  - PHLEBITIS [None]
